FAERS Safety Report 7094447-5 (Version None)
Quarter: 2010Q4

REPORT INFORMATION
  Report Type: 
  Country: None (occurrence: None)
  Receive Date: 20101110
  Receipt Date: 20101028
  Transmission Date: 20110411
  Serious: Yes (Hospitalization)
  Sender: FDA-Public Use
  Company Number: PHHY2010DE74002

PATIENT
  Sex: Female

DRUGS (1)
  1. LEPONEX [Suspect]
     Indication: SCHIZOPHRENIA
     Dosage: 25 MG/DAY
     Route: 048
     Dates: start: 20101001

REACTIONS (5)
  - C-REACTIVE PROTEIN INCREASED [None]
  - ELECTROCARDIOGRAM CHANGE [None]
  - LIPASE INCREASED [None]
  - PERICARDIAL EFFUSION [None]
  - PLEURAL EFFUSION [None]
